FAERS Safety Report 4471861-5 (Version None)
Quarter: 2004Q4

REPORT INFORMATION
  Report Type: 
  Country: None (occurrence: None)
  Receive Date: 20041006
  Receipt Date: 20040927
  Transmission Date: 20050328
  Serious: Yes (Death)
  Sender: FDA-Public Use
  Company Number: 2004070462

PATIENT
  Age: 60 Year
  Sex: 0

DRUGS (2)
  1. DOXAZOSIN (DOXAZOSIN) [Suspect]
     Indication: ILL-DEFINED DISORDER
     Dates: end: 20030101
  2. COACINE (COAINE) [Suspect]
     Indication: ILL-DEFINED DISORDER
     Dates: end: 20030101

REACTIONS (3)
  - COMPLETED SUICIDE [None]
  - DRUG ABUSER [None]
  - OVERDOSE [None]
